FAERS Safety Report 18799470 (Version 1)
Quarter: 2021Q1

REPORT INFORMATION
  Report Type: Spontaneous
  Country: CN (occurrence: CN)
  Receive Date: 20210128
  Receipt Date: 20210128
  Transmission Date: 20210419
  Serious: Yes (Other)
  Sender: FDA-Public Use
  Company Number: CN-SLATE RUN PHARMACEUTICALS-21CN000387

PATIENT

DRUGS (9)
  1. OTHER THERAPEUTIC PRODUCTS [Suspect]
     Active Substance: UNSPECIFIED INGREDIENT
     Indication: ANAPHYLACTIC REACTION
  2. ANESTHETICS [Concomitant]
     Active Substance: UNSPECIFIED INGREDIENT
     Indication: SPINAL FUSION SURGERY
  3. ANESTHETICS [Concomitant]
     Active Substance: UNSPECIFIED INGREDIENT
     Indication: SPINAL DECOMPRESSION
     Route: 065
  4. OTHER THERAPEUTIC PRODUCTS [Suspect]
     Active Substance: UNSPECIFIED INGREDIENT
     Indication: CIRCULATORY COLLAPSE
     Dosage: 1500 MILLILITRE, SINGLE
     Route: 042
  5. ANESTHETICS [Concomitant]
     Active Substance: UNSPECIFIED INGREDIENT
     Indication: INTERNAL FIXATION OF SPINE
  6. OTHER THERAPEUTIC PRODUCTS [Suspect]
     Active Substance: UNSPECIFIED INGREDIENT
     Indication: ANAPHYLACTIC REACTION
  7. VANCOMYCIN HYDROCHLORIDE USP [Suspect]
     Active Substance: VANCOMYCIN HYDROCHLORIDE
     Indication: INFECTION PROPHYLAXIS
     Dosage: 0.5 GRAM SPRAYING, SINGLE
     Route: 061
  8. VANCOMYCIN HYDROCHLORIDE USP [Suspect]
     Active Substance: VANCOMYCIN HYDROCHLORIDE
     Dosage: 0.5 GRAM WITH BONE DEBRIS, SINGLE
     Route: 061
  9. OTHER THERAPEUTIC PRODUCTS [Suspect]
     Active Substance: UNSPECIFIED INGREDIENT
     Indication: CIRCULATORY COLLAPSE
     Dosage: 3100 MILLILITRE, SINGLE
     Route: 042

REACTIONS (5)
  - Off label use [Unknown]
  - Tachycardia [Recovered/Resolved]
  - Haemoglobin decreased [Recovered/Resolved]
  - Circulatory collapse [Recovered/Resolved]
  - Anaphylactic reaction [Recovered/Resolved]
